FAERS Safety Report 5957847-X (Version None)
Quarter: 2008Q4

REPORT INFORMATION
  Report Type: 
  Country: None (occurrence: None)
  Receive Date: 20081119
  Receipt Date: 20081031
  Transmission Date: 20090506
  Serious: No
  Sender: FDA-Public Use
  Company Number: DE-ASTRAZENECA-2008PK02365

PATIENT
  Age: 24 Year
  Sex: Male

DRUGS (2)
  1. SEROQUEL XR [Suspect]
     Route: 048
  2. ERGENYL CHRONO [Concomitant]

REACTIONS (2)
  - LEUKOPENIA [None]
  - TRANSAMINASES INCREASED [None]
